FAERS Safety Report 19478368 (Version 1)
Quarter: 2021Q2

REPORT INFORMATION
  Report Type: Spontaneous
  Country: US (occurrence: US)
  Receive Date: 20210630
  Receipt Date: 20210630
  Transmission Date: 20210717
  Serious: No
  Sender: FDA-Public Use
  Company Number: US-MYLANLABS-2021M1036970

PATIENT
  Sex: Male
  Weight: 86 kg

DRUGS (1)
  1. ACAMPROSATE CALCIUM DELAYED?RELEASE TABLETS [Suspect]
     Active Substance: ACAMPROSATE CALCIUM
     Indication: ALCOHOLISM
     Dosage: 2 DOSAGE FORM, TID
     Route: 048
     Dates: start: 2021

REACTIONS (1)
  - Weight increased [Not Recovered/Not Resolved]

NARRATIVE: CASE EVENT DATE: 2021
